FAERS Safety Report 10008739 (Version 2)
Quarter: 2014Q1

REPORT INFORMATION
  Report Type: Spontaneous
  Country: US (occurrence: US)
  Receive Date: 20140312
  Receipt Date: 20140312
  Transmission Date: 20141002
  Serious: No
  Sender: FDA-Public Use
  Company Number: US-INCYTE CORPORATION-2012IN000210

PATIENT
  Age: 82 Year
  Sex: Male
  Weight: 72.56 kg

DRUGS (6)
  1. JAKAFI [Suspect]
     Indication: MYELOFIBROSIS
     Dosage: 20 MG, BID
     Route: 048
     Dates: start: 20120131
  2. LISINOPRIL [Concomitant]
     Dosage: 5 MG, IN AM
  3. ALLOPURINOL [Concomitant]
     Dosage: 300 MG, UNK
  4. COREG [Concomitant]
     Dosage: 12.5 MG, UNK
  5. VITAMINS NOS [Concomitant]
  6. ASPIRIN LOW [Concomitant]
     Dosage: 81 MG, UNK

REACTIONS (1)
  - Diarrhoea [Not Recovered/Not Resolved]
